FAERS Safety Report 10899807 (Version 1)
Quarter: 2015Q1

REPORT INFORMATION
  Report Type: Spontaneous
  Country: US (occurrence: US)
  Receive Date: 20150310
  Receipt Date: 20150310
  Transmission Date: 20150721
  Serious: No
  Sender: FDA-Public Use
  Company Number: US-GLAXOSMITHKLINE-US2015020228

PATIENT
  Sex: Female

DRUGS (7)
  1. LEVOTHYROXINE [Concomitant]
     Active Substance: LEVOTHYROXINE
  2. AROMASIN [Concomitant]
     Active Substance: EXEMESTANE
  3. LOMOTIL [Concomitant]
     Active Substance: ATROPINE SULFATE\DIPHENOXYLATE HYDROCHLORIDE
  4. TYKERB [Suspect]
     Active Substance: LAPATINIB DITOSYLATE
     Indication: BREAST CANCER
     Dosage: 250 MG, 1D
     Route: 048
     Dates: start: 2014
  5. VICODIN [Concomitant]
     Active Substance: ACETAMINOPHEN\HYDROCODONE BITARTRATE
  6. ADVIL [Concomitant]
     Active Substance: IBUPROFEN
  7. CALCIUM SUPPLEMENT [Concomitant]
     Active Substance: CALCIUM

REACTIONS (1)
  - Diarrhoea [Unknown]
